FAERS Safety Report 6506681-0 (Version None)
Quarter: 2009Q4

REPORT INFORMATION
  Report Type: 
  Country: None (occurrence: None)
  Receive Date: 20091221
  Receipt Date: 20091209
  Transmission Date: 20100525
  Serious: Yes (Other)
  Sender: FDA-Public Use
  Company Number: SE-SANOFI-AVENTIS-2009SA007858

PATIENT
  Age: 50 Year
  Sex: Female

DRUGS (4)
  1. ARAVA [Suspect]
     Indication: RHEUMATOID ARTHRITIS
     Route: 048
     Dates: start: 20090310, end: 20091016
  2. TEGRETOL - SLOW RELEASE [Concomitant]
     Indication: EPILEPSY
     Dosage: MANY YEARS USE
  3. OMEPRAZOLE [Concomitant]
  4. EVOREL [Concomitant]

REACTIONS (1)
  - GRAND MAL CONVULSION [None]
